FAERS Safety Report 9854086 (Version 1)
Quarter: 2014Q1

REPORT INFORMATION
  Report Type: Spontaneous
  Country: DE (occurrence: DE)
  Receive Date: 20140129
  Receipt Date: 20140129
  Transmission Date: 20141002
  Serious: Yes (Death)
  Sender: FDA-Public Use
  Company Number: DE-AMGEN-DEUSP2014004996

PATIENT
  Sex: 0

DRUGS (3)
  1. XGEVA [Suspect]
     Indication: METASTASES TO BONE
     Dosage: 120 MG, UNK
     Route: 058
  2. CALCIUM [Concomitant]
     Dosage: 500 MG, UNK
  3. VITAMIN D                          /00107901/ [Concomitant]
     Dosage: 400 IU, UNK

REACTIONS (4)
  - Malignant neoplasm progression [Fatal]
  - Vertigo [Recovered/Resolved]
  - Vomiting [Recovered/Resolved]
  - Nausea [Recovered/Resolved]
